FAERS Safety Report 6466368-X (Version None)
Quarter: 2009Q4

REPORT INFORMATION
  Report Type: 
  Country: None (occurrence: None)
  Receive Date: 20091127
  Receipt Date: 20091117
  Transmission Date: 20100525
  Serious: Yes (Hospitalization)
  Sender: FDA-Public Use
  Company Number: DSA_41747_2009

PATIENT
  Sex: Female
  Weight: 93.441 kg

DRUGS (3)
  1. VASOTEC [Suspect]
     Dosage: 10 MG QD
     Dates: start: 20090412, end: 20090413
  2. RED YEAST RICE [Concomitant]
  3. MULTIVITAMIN /00831701/ [Concomitant]

REACTIONS (4)
  - BLOOD PRESSURE INCREASED [None]
  - DRUG INEFFECTIVE [None]
  - HEART RATE INCREASED [None]
  - MALAISE [None]
